FAERS Safety Report 4992747-3 (Version None)
Quarter: 2006Q1

REPORT INFORMATION
  Report Type: 
  Country: None (occurrence: None)
  Receive Date: 20060315
  Receipt Date: 20051003
  Transmission Date: 20060701
  Serious: No
  Sender: FDA-Public Use
  Company Number: 02100-USA-05-0051

PATIENT
  Sex: Female

DRUGS (2)
  1. PLETAL [Suspect]
     Dosage: 100 MG BID ORAL
     Route: 048
  2. ZOLOFT [Concomitant]

REACTIONS (1)
  - THROMBOCYTOPENIA [None]
